FAERS Safety Report 4589757-7 (Version None)
Quarter: 2005Q1

REPORT INFORMATION
  Report Type: 
  Country: None (occurrence: None)
  Receive Date: 20050217
  Receipt Date: 20050203
  Transmission Date: 20050727
  Serious: No
  Sender: FDA-Public Use
  Company Number: 05H-151-0289474-00

PATIENT
  Age: 43 Year
  Sex: Male

DRUGS (1)
  1. MIDAZOLAM HYDROCHLORIDE [Suspect]
     Dosage: INTRAVENOUS
     Route: 042

REACTIONS (4)
  - HEPATIC FAILURE [None]
  - MEDICATION ERROR [None]
  - OVERDOSE [None]
  - RESPIRATORY FAILURE [None]
